FAERS Safety Report 8326970-7 (Version None)
Quarter: 2012Q2

REPORT INFORMATION
  Report Type: 
  Country: None (occurrence: None)
  Receive Date: 20120501
  Receipt Date: 20111017
  Transmission Date: 20120825
  Serious: Yes (Hospitalization)
  Sender: FDA-Public Use
  Company Number: US-SANOFI-AVENTIS-2011SA069250

PATIENT
  Age: 49 Year
  Sex: Male
  Weight: 88 kg

DRUGS (11)
  1. TRAMADOL HCL [Concomitant]
  2. RANITIDINE [Concomitant]
  3. ASPIRIN [Concomitant]
  4. LORAZEPAM [Concomitant]
  5. POTASSIUM CHLORIDE [Concomitant]
  6. DILTIAZEM HCL [Concomitant]
  7. LOSARTAN POTASSIUM [Concomitant]
  8. PRAVASTATIN [Concomitant]
  9. CITALOPRAM [Concomitant]
  10. APIDRA [Suspect]
     Dosage: CONTINUOUS VIA PUMP
     Route: 058
     Dates: start: 20110901, end: 20111008
  11. OXYCODONE HCL AND ACETAMINOPHEN [Concomitant]
     Dosage: 10MG/325MG TABLETONE TABLET 4 TIMES A DAY

REACTIONS (3)
  - PRODUCT QUALITY ISSUE [None]
  - INFECTION [None]
  - HYPERGLYCAEMIA [None]
